FAERS Safety Report 6874689-1 (Version None)
Quarter: 2010Q3

REPORT INFORMATION
  Report Type: 
  Country: None (occurrence: None)
  Receive Date: 20100722
  Receipt Date: 20100714
  Transmission Date: 20110219
  Serious: Yes (Congenital Anomaly)
  Sender: FDA-Public Use
  Company Number: 8040935

PATIENT
  Sex: Male

DRUGS (4)
  1. KEPPRA [Suspect]
     Dosage: 1000 MG BID TRANSPLACENTAL
     Route: 064
  2. FOLIC ACID [Concomitant]
  3. PRENATAL VITAMINS [Concomitant]
  4. PHENERGAN [Concomitant]

REACTIONS (4)
  - CONGENITAL TORTICOLLIS [None]
  - DRUG EXPOSURE VIA BREAST MILK [None]
  - HYDROCELE [None]
  - MATERNAL DRUGS AFFECTING FOETUS [None]
